FAERS Safety Report 4771577-1 (Version None)
Quarter: 2005Q3

REPORT INFORMATION
  Report Type: 
  Country: None (occurrence: None)
  Receive Date: 20050914
  Receipt Date: 20050914
  Transmission Date: 20060218
  Serious: Yes (Death, Hospitalization)
  Sender: FDA-Public Use
  Company Number: None

PATIENT
  Sex: Female
  Weight: 60 kg

DRUGS (4)
  1. CAPECITABINE [Suspect]
     Indication: RECTAL CANCER
     Dosage: SEE IMAGE
     Dates: start: 20020516, end: 20050701
  2. CAPECITABINE [Suspect]
     Indication: RECTAL CANCER
     Dosage: SEE IMAGE
     Dates: start: 20050526
  3. IRINOTECAN HCL [Suspect]
     Dosage: SEE IMAGE
     Dates: start: 20050826
  4. RADIATION [Suspect]
     Dosage: SEE IMAGE
     Dates: start: 20050826

REACTIONS (4)
  - HEPATIC CIRRHOSIS [None]
  - HEPATIC FAILURE [None]
  - MULTI-ORGAN FAILURE [None]
  - POST PROCEDURAL COMPLICATION [None]
